FAERS Safety Report 5999279-4 (Version None)
Quarter: 2008Q4

REPORT INFORMATION
  Report Type: 
  Country: None (occurrence: None)
  Receive Date: 20081215
  Receipt Date: 20071126
  Transmission Date: 20090506
  Serious: No
  Sender: FDA-Public Use
  Company Number: US-AMGEN-KDL253440

PATIENT
  Sex: Female

DRUGS (13)
  1. ENBREL [Suspect]
     Indication: RHEUMATOID ARTHRITIS
     Route: 058
     Dates: start: 20021120
  2. METHOTREXATE [Concomitant]
     Dates: start: 19980101
  3. FOLIC ACID [Concomitant]
  4. HYDROCHLOROTHIAZIDE [Concomitant]
  5. IRON [Concomitant]
  6. PREDNISONE TAB [Concomitant]
  7. SINGULAIR [Concomitant]
  8. LOSARTAN POTASSIUM [Concomitant]
     Route: 048
  9. ASPIRIN [Concomitant]
  10. CALCIUM [Concomitant]
  11. MONTELUKAST SODIUM [Concomitant]
     Route: 048
  12. FLUNISOLIDE [Concomitant]
  13. ALBUTEROL [Concomitant]

REACTIONS (6)
  - FELTY'S SYNDROME [None]
  - RECTAL HAEMORRHAGE [None]
  - RHEUMATOID ARTHRITIS [None]
  - RHINITIS ALLERGIC [None]
  - UPPER RESPIRATORY TRACT INFLAMMATION [None]
  - VULVOVAGINAL MYCOTIC INFECTION [None]
